FAERS Safety Report 9111532 (Version 1)
Quarter: 2013Q1

REPORT INFORMATION
  Report Type: Spontaneous
  Country: US (occurrence: US)
  Receive Date: 20130219
  Receipt Date: 20130219
  Transmission Date: 20140127
  Serious: No
  Sender: FDA-Public Use
  Company Number: US-BRISTOL-MYERS SQUIBB COMPANY-17224676

PATIENT
  Age: 57 Year
  Sex: Female

DRUGS (2)
  1. ABATACEPT SUBQ INJECTION 125MG/ML [Suspect]
     Dosage: LAST INJECTION:  14DEC2012
     Route: 058
  2. ENBREL [Suspect]

REACTIONS (3)
  - Musculoskeletal stiffness [Unknown]
  - Somnolence [Unknown]
  - Hyperaesthesia [Unknown]
